FAERS Safety Report 24601216 (Version 1)
Quarter: 2024Q4

REPORT INFORMATION
  Report Type: Spontaneous
  Country: GB (occurrence: None)
  Receive Date: 20241111
  Receipt Date: 20241111
  Transmission Date: 20250114
  Serious: Yes (Other)
  Sender: Alvotech
  Company Number: None

PATIENT
  Age: 83 Year

DRUGS (9)
  1. USTEKINUMAB [Suspect]
     Active Substance: USTEKINUMAB
     Indication: Product used for unknown indication
     Route: 065
  2. SODIUM BICARBONATE [Concomitant]
     Active Substance: SODIUM BICARBONATE
  3. SIMVASTATIN [Concomitant]
     Active Substance: SIMVASTATIN
  4. ASPIRIN [Concomitant]
     Active Substance: ASPIRIN
  5. DOXAZOSIN [Concomitant]
     Active Substance: DOXAZOSIN\DOXAZOSIN MESYLATE
  6. DARBEPOETIN ALFA [Concomitant]
     Active Substance: DARBEPOETIN ALFA
  7. SODIUM HYALURONATE [Concomitant]
     Active Substance: HYALURONATE SODIUM
  8. SENNA [Concomitant]
     Active Substance: SENNA LEAF\SENNOSIDES\SENNOSIDES A AND B
  9. HYLO NIGHT [Concomitant]

REACTIONS (1)
  - Renal impairment [Unknown]
